FAERS Safety Report 7514928-7 (Version None)
Quarter: 2011Q2

REPORT INFORMATION
  Report Type: 
  Country: None (occurrence: None)
  Receive Date: 20110601
  Receipt Date: 20101220
  Transmission Date: 20111010
  Serious: Yes (Hospitalization, Other)
  Sender: FDA-Public Use
  Company Number: US-BAYER-201033919NA

PATIENT
  Age: 17 Year
  Sex: Female
  Weight: 73 kg

DRUGS (4)
  1. YASMIN [Suspect]
     Indication: PRODUCT USED FOR UNKNOWN INDICATION
     Dosage: UNK
     Dates: start: 20060101, end: 20070101
  2. ALBUTEROL SULFATE AUTOHALER [Concomitant]
  3. NAPROXEN [Concomitant]
  4. PROTONIX [Concomitant]
     Dosage: UNK
     Dates: start: 20061001

REACTIONS (6)
  - CHOLELITHIASIS [None]
  - ABDOMINAL PAIN [None]
  - ABDOMINAL PAIN UPPER [None]
  - CHOLECYSTITIS CHRONIC [None]
  - PAIN [None]
  - BILIARY COLIC [None]
